FAERS Safety Report 9683500 (Version 1)
Quarter: 2013Q4

REPORT INFORMATION
  Report Type: Report from Study
  Country: LB (occurrence: LB)
  Receive Date: 20131112
  Receipt Date: 20131112
  Transmission Date: 20140711
  Serious: Yes (Other)
  Sender: FDA-Public Use
  Company Number: LB-SA-2013SA114883

PATIENT
  Age: 60 Year
  Sex: Male

DRUGS (9)
  1. LANTUS SOLOSTAR [Suspect]
     Indication: DIABETES MELLITUS
     Dosage: DOSE:20 UNIT(S)
     Route: 058
     Dates: start: 2012
  2. SOLOSTAR [Concomitant]
     Indication: DEVICE THERAPY
     Route: 058
     Dates: start: 2012
  3. INSULIN [Concomitant]
     Indication: DIABETES MELLITUS
     Route: 058
  4. PLAVIX [Concomitant]
     Route: 048
  5. CORVASAL [Concomitant]
     Route: 048
  6. CONCOR [Concomitant]
     Route: 048
  7. CRESTOR [Concomitant]
     Route: 048
  8. ASPICOT [Concomitant]
  9. RAMIPRIL [Concomitant]
     Route: 048

REACTIONS (1)
  - Cardiac operation [Unknown]
